FAERS Safety Report 8360160-7 (Version None)
Quarter: 2012Q2

REPORT INFORMATION
  Report Type: 
  Country: None (occurrence: None)
  Receive Date: 20120515
  Receipt Date: 20120511
  Transmission Date: 20120825
  Serious: Yes (Other)
  Sender: FDA-Public Use
  Company Number: US-BAYER-2012-046452

PATIENT
  Age: 58 Year
  Sex: Male

DRUGS (1)
  1. NEXAVAR [Suspect]
     Indication: HEPATIC NEOPLASM MALIGNANT
     Dosage: 400 MG, BID
     Dates: start: 20120501

REACTIONS (5)
  - AGEUSIA [None]
  - MENTAL IMPAIRMENT [None]
  - RETCHING [None]
  - CONSTIPATION [None]
  - THINKING ABNORMAL [None]
